FAERS Safety Report 13165783 (Version 1)
Quarter: 2017Q1

REPORT INFORMATION
  Report Type: Spontaneous
  Country: US (occurrence: US)
  Receive Date: 20170126
  Receipt Date: 20170126
  Transmission Date: 20170428
  Serious: Yes (Life-Threatening, Hospitalization)
  Sender: FDA-Public Use
  Company Number: None

PATIENT
  Age: 86 Year
  Sex: Male
  Weight: 76.5 kg

DRUGS (1)
  1. MELOXICAM. [Suspect]
     Active Substance: MELOXICAM
     Indication: PAIN
     Route: 048
     Dates: start: 20130219, end: 20130506

REACTIONS (16)
  - Haematocrit decreased [None]
  - White blood cell count increased [None]
  - Mental status changes [None]
  - Acute kidney injury [None]
  - Gastrointestinal haemorrhage [None]
  - Upper gastrointestinal haemorrhage [None]
  - Duodenal ulcer [None]
  - Asthenia [None]
  - Gastritis [None]
  - Dizziness [None]
  - Haemoglobin decreased [None]
  - Anaemia [None]
  - Abdominal pain [None]
  - Oesophagitis [None]
  - Haematochezia [None]
  - Hypotension [None]

NARRATIVE: CASE EVENT DATE: 20130426
